FAERS Safety Report 8780559 (Version 1)
Quarter: 2012Q4

REPORT INFORMATION
  Report Type: 
  Country: IE (occurrence: IE)
  Receive Date: 20120913
  Receipt Date: 20120913
  Transmission Date: 20130627
  Serious: Yes (Other)
  Sender: FDA-Public Use
  Company Number: IE-PFIZER INC-2012222237

PATIENT
  Age: 67 Year
  Sex: Male

DRUGS (1)
  1. DETRUSITOL [Suspect]
     Dosage: 4 mg, UNK

REACTIONS (1)
  - Dysphagia [Unknown]
